FAERS Safety Report 25686090 (Version 1)
Quarter: 2025Q3

REPORT INFORMATION
  Report Type: Other
  Country: CN (occurrence: CN)
  Receive Date: 20250815
  Receipt Date: 20250815
  Transmission Date: 20251021
  Serious: Yes (Hospitalization)
  Sender: PARATEK PHARMACEUTICALS
  Company Number: CN-PARATEK PHARMACEUTICALS, INC.-2025PTK01039

PATIENT
  Age: 24 Year
  Sex: Male
  Weight: 76 kg

DRUGS (1)
  1. NUZYRA [Suspect]
     Active Substance: OMADACYCLINE
     Indication: Pneumonia chlamydial
     Dosage: 0.1 G, QD
     Route: 041
     Dates: start: 20250528, end: 20250605

REACTIONS (2)
  - Dermatitis infected [Unknown]
  - Eczema [Unknown]

NARRATIVE: CASE EVENT DATE: 20250530
